FAERS Safety Report 8036444-9 (Version None)
Quarter: 2012Q1

REPORT INFORMATION
  Report Type: 
  Country: None (occurrence: None)
  Receive Date: 20120111
  Receipt Date: 20120105
  Transmission Date: 20120608
  Serious: Yes (Other)
  Sender: FDA-Public Use
  Company Number: ES-CELGENEUS-144-21660-12010743

PATIENT
  Age: 18 Year
  Sex: Female

DRUGS (7)
  1. FORTECORTIN [Concomitant]
     Indication: PROPHYLAXIS
     Route: 041
     Dates: start: 20111108
  2. GEMCITABINE [Concomitant]
     Indication: BREAST CANCER
     Route: 041
     Dates: start: 20111108, end: 20111108
  3. PREDNISONE [Concomitant]
     Indication: DYSPNOEA
     Dosage: 20 MILLIGRAM
     Route: 048
     Dates: start: 20111108
  4. ABRAXANE [Suspect]
     Indication: BREAST CANCER
     Route: 041
     Dates: start: 20111108, end: 20111108
  5. ZOFRAN [Concomitant]
     Indication: PROPHYLAXIS
     Route: 041
     Dates: start: 20111108
  6. OMEPRAZOLE [Concomitant]
     Indication: PROPHYLAXIS
     Dosage: 20 MILLIGRAM
     Route: 048
     Dates: start: 20111108
  7. IBUPROFEN [Concomitant]
     Indication: PAIN
     Dosage: 1800 MILLIGRAM
     Route: 048
     Dates: start: 20111108

REACTIONS (4)
  - HYPOTENSION [None]
  - DYSPNOEA [None]
  - DEPRESSED LEVEL OF CONSCIOUSNESS [None]
  - HYPERHIDROSIS [None]
